FAERS Safety Report 10205469 (Version 1)
Quarter: 2014Q2

REPORT INFORMATION
  Report Type: Report from Study
  Country: TW (occurrence: TW)
  Receive Date: 20140529
  Receipt Date: 20140529
  Transmission Date: 20141212
  Serious: Yes (Other)
  Sender: FDA-Public Use
  Company Number: TW-MYLANLABS-2014S1011822

PATIENT
  Age: 23 Year
  Sex: Male

DRUGS (1)
  1. TETRACYCLINE [Suspect]
     Route: 065

REACTIONS (2)
  - Drug eruption [Unknown]
  - Dermatitis bullous [Unknown]
